FAERS Safety Report 9338021 (Version 3)
Quarter: 2013Q3

REPORT INFORMATION
  Report Type: Spontaneous
  Country: CA (occurrence: CA)
  Receive Date: 20130610
  Receipt Date: 20130724
  Transmission Date: 20140515
  Serious: Yes (Other)
  Sender: FDA-Public Use
  Company Number: CA-AMGEN-CANSP2013040084

PATIENT
  Age: 37 Year
  Sex: Female

DRUGS (3)
  1. ENBREL [Suspect]
     Indication: PSORIASIS
     Dosage: 50 MG, 2 TIMES/WK FOR 3 MONTHS THEN SWITCHED TO ONCE WEEKLY
     Route: 058
     Dates: start: 20121207
  2. DOVONEX [Concomitant]
     Dosage: TOPICAL LOTION
  3. LUXIQ [Concomitant]
     Dosage: FOAM

REACTIONS (2)
  - Squamous cell carcinoma of the cervix [Unknown]
  - Cervical dysplasia [Unknown]
